FAERS Safety Report 5485532-X (Version None)
Quarter: 2007Q4

REPORT INFORMATION
  Report Type: 
  Country: None (occurrence: None)
  Receive Date: 20071011
  Receipt Date: 20070928
  Transmission Date: 20080405
  Serious: Yes (Other)
  Sender: FDA-Public Use
  Company Number: 6038426

PATIENT
  Age: 68 Year
  Sex: Female

DRUGS (6)
  1. METFORMIN HCL [Suspect]
     Indication: TYPE 2 DIABETES MELLITUS
     Dosage: 2550 MG (1 D)
     Route: 048
     Dates: start: 20070723
  2. AMARYL(2 MG, TABLET) (GLIMEPIRIDE) [Suspect]
     Indication: TYPE 2 DIABETES MELLITUS
     Dosage: 4 MG (1 D)
     Route: 048
     Dates: start: 20070723
  3. LANTUS(SUSPENSION FOR INJECTION) (INSULIN GLARGINE) [Suspect]
     Indication: TYPE 2 DIABETES MELLITUS
     Dosage: 10 IU (10 IU, 1 D) 6 IU (6 IU)
     Route: 058
     Dates: start: 20070827
  4. LANTUS(SUSPENSION FOR INJECTION) (INSULIN GLARGINE) [Suspect]
     Indication: TYPE 2 DIABETES MELLITUS
     Dosage: 10 IU (10 IU, 1 D) 6 IU (6 IU)
     Route: 058
     Dates: start: 20070830
  5. LOSARTAN POTASSIUM [Concomitant]
  6. SIMVASTATIN [Concomitant]

REACTIONS (2)
  - DECREASED APPETITE [None]
  - HYPOGLYCAEMIA [None]
